FAERS Safety Report 7134538-3 (Version None)
Quarter: 2010Q4

REPORT INFORMATION
  Report Type: 
  Country: None (occurrence: None)
  Receive Date: 20101203
  Receipt Date: 20101125
  Transmission Date: 20110411
  Serious: Yes (Hospitalization)
  Sender: FDA-Public Use
  Company Number: FR-PFIZER INC-2010162522

PATIENT
  Age: 53 Year
  Sex: Male

DRUGS (11)
  1. ATARAX [Suspect]
     Dosage: 50 MG QD
     Route: 048
     Dates: start: 20101015
  2. ATARAX [Suspect]
     Dosage: 100 MG QD
     Route: 048
     Dates: start: 20101021, end: 20101028
  3. LYRICA [Concomitant]
     Dosage: 75 MG TID
     Route: 048
     Dates: start: 20101021, end: 20101029
  4. AVLOCARDYL [Concomitant]
     Indication: VARICES OESOPHAGEAL
     Dosage: 40 MG QD
     Route: 048
     Dates: start: 20101028, end: 20101028
  5. AVLOCARDYL [Concomitant]
     Dosage: 160 MG QD
     Route: 048
     Dates: start: 20101029, end: 20101030
  6. SPECIAFOLDINE [Concomitant]
     Indication: HIV INFECTION
     Dosage: 5 MG QD
  7. SPECIAFOLDINE [Concomitant]
     Indication: HEPATITIS C
  8. ABACAVIR SULFATE/LAMIVUDINE [Concomitant]
     Indication: HIV INFECTION
     Dosage: 1 DF, 1X/DAY
  9. ABACAVIR SULFATE/LAMIVUDINE [Concomitant]
     Indication: HEPATITIS C
  10. VIRAMUNE [Concomitant]
     Indication: HIV INFECTION
     Dosage: 2 DF, 1X/DAY
  11. VIRAMUNE [Concomitant]
     Indication: HEPATITIS C

REACTIONS (4)
  - CONFUSIONAL STATE [None]
  - DISORIENTATION [None]
  - HEPATIC FAILURE [None]
  - SOMNOLENCE [None]
